FAERS Safety Report 6520756-1 (Version None)
Quarter: 2009Q4

REPORT INFORMATION
  Report Type: 
  Country: None (occurrence: None)
  Receive Date: 20091229
  Receipt Date: 20091218
  Transmission Date: 20100525
  Serious: Yes (Other)
  Sender: FDA-Public Use
  Company Number: CA-JNJFOC-20091006854

PATIENT
  Sex: Female
  Weight: 70.6 kg

DRUGS (3)
  1. REMICADE [Suspect]
     Dosage: 7TH INFUSION
     Route: 042
     Dates: end: 20091020
  2. REMICADE [Suspect]
     Route: 042
     Dates: end: 20091020
  3. REMICADE [Suspect]
     Indication: CROHN'S DISEASE
     Route: 042
     Dates: end: 20091020

REACTIONS (2)
  - BRAIN NEOPLASM BENIGN [None]
  - H1N1 INFLUENZA [None]
